FAERS Safety Report 4438807-7 (Version None)
Quarter: 2004Q3

REPORT INFORMATION
  Report Type: 
  Country: None (occurrence: None)
  Receive Date: 20040830
  Receipt Date: 20040824
  Transmission Date: 20050211
  Serious: Yes (Disabling)
  Sender: FDA-Public Use
  Company Number: HQ8496315NOV2001

PATIENT
  Age: 43 Year
  Sex: Male

DRUGS (24)
  1. DIMETAPP [Suspect]
     Indication: NASOPHARYNGITIS
     Dosage: ORAL
     Route: 048
     Dates: start: 19931101
  2. ALKA-SELTZER PLUS (ACETYLASLICYLIC ACID/CHLORPHENAMINE MALEATE/PHENYLP [Suspect]
     Dosage: ORAL
     Route: 048
     Dates: start: 19931101
  3. ALKA-SELTZER PLUS COL (ACETYLASLICYLIC ACID/CHLORPHENAMINE MALEATE/PHE [Suspect]
     Indication: HYPERSENSITIVITY
     Dosage: ^2 EACH DAY^, ORAL
     Route: 048
     Dates: start: 19931101
  4. ALKA-SELTZER PLUS COL (ACETYLASLICYLIC ACID/CHLORPHENAMINE MALEATE/PHE [Suspect]
     Indication: INFLUENZA
     Dosage: ^2 EACH DAY^, ORAL
     Route: 048
     Dates: start: 19931101
  5. ALKA-SELTZER PLUS COL (ACETYLASLICYLIC ACID/CHLORPHENAMINE MALEATE/PHE [Suspect]
     Indication: NASOPHARYNGITIS
     Dosage: ^2 EACH DAY^, ORAL
     Route: 048
     Dates: start: 19931101
  6. COMTREX (CHLOROPHENAMINE MALEATE/ DEXTROMETHORPHAN HYDROBROMIDE/PARACE [Suspect]
     Indication: INFLUENZA
     Dosage: ORAL
     Route: 048
     Dates: start: 19931101
  7. COMTREX (CHLOROPHENAMINE MALEATE/ DEXTROMETHORPHAN HYDROBROMIDE/PARACE [Suspect]
     Indication: NASOPHARYNGITIS
     Dosage: ORAL
     Route: 048
     Dates: start: 19931101
  8. COMTREX (CHLOROPHENAMINE MALEATE/ DEXTROMETHORPHAN HYDROBROMIDE/PARACE [Suspect]
     Indication: SINUS CONGESTION
     Dosage: ORAL
     Route: 048
     Dates: start: 19931101
  9. CONTAC [Suspect]
     Indication: HYPERSENSITIVITY
     Dates: start: 19931101
  10. CONTAC [Suspect]
     Indication: NASOPHARYNGITIS
     Dates: start: 19931101
  11. CONTAC [Suspect]
     Indication: SINUS CONGESTION
     Dates: start: 19931101
  12. DEXATRIM (CAFFEINE/PHENYLPROPANOLAMINE HYDROCHLRIDE,) [Suspect]
     Dosage: ORAL
     Route: 048
     Dates: start: 19931101
  13. ROBITUSIN CF (GUAIFENESIN/DEXTROMETHORPHAN/PHENYLPROPANOLAMINE, SYRUP) [Suspect]
     Indication: HYPERSENSITIVITY
     Dosage: ^ 3 TBLS. EACH DAY^,ORAL
     Route: 048
     Dates: start: 19931101
  14. ROBITUSIN CF (GUAIFENESIN/DEXTROMETHORPHAN/PHENYLPROPANOLAMINE, SYRUP) [Suspect]
     Indication: INFLUENZA
     Dosage: ^ 3 TBLS. EACH DAY^,ORAL
     Route: 048
     Dates: start: 19931101
  15. ROBITUSIN CF (GUAIFENESIN/DEXTROMETHORPHAN/PHENYLPROPANOLAMINE, SYRUP) [Suspect]
     Indication: NASOPHARYNGITIS
     Dosage: ^ 3 TBLS. EACH DAY^,ORAL
     Route: 048
     Dates: start: 19931101
  16. TAVIST-D (CLEMASTINE FUMARATE/PHENYLPROPANOLAMINE HYDROCHLORIED,) [Suspect]
     Indication: HYPERSENSITIVITY
     Dosage: ORAL
     Route: 048
     Dates: start: 19931101
  17. TAVIST-D (CLEMASTINE FUMARATE/PHENYLPROPANOLAMINE HYDROCHLORIED,) [Suspect]
     Indication: INFLUENZA
     Dosage: ORAL
     Route: 048
     Dates: start: 19931101
  18. TAVIST-D (CLEMASTINE FUMARATE/PHENYLPROPANOLAMINE HYDROCHLORIED,) [Suspect]
     Indication: NASOPHARYNGITIS
     Dosage: ORAL
     Route: 048
     Dates: start: 19931101
  19. TAVIST-D (CLEMASTINE FUMARATE/PHENYLPROPANOLAMINE HYDROCHLORIED,) [Suspect]
     Indication: SINUS CONGESTION
     Dosage: ORAL
     Route: 048
     Dates: start: 19931101
  20. TRIAMINIC SRT [Suspect]
     Indication: HYPERSENSITIVITY
     Dosage: ORAL
     Route: 048
     Dates: start: 19931101
  21. TRIAMINIC SRT [Suspect]
     Indication: INFLUENZA
     Dosage: ORAL
     Route: 048
     Dates: start: 19931101
  22. TRIAMINIC SRT [Suspect]
     Indication: NASOPHARYNGITIS
     Dosage: ORAL
     Route: 048
     Dates: start: 19931101
  23. TRIAMINIC SRT [Suspect]
     Indication: SINUS CONGESTION
     Dosage: ORAL
     Route: 048
     Dates: start: 19931101
  24. NORVASC [Concomitant]

REACTIONS (3)
  - CEREBROVASCULAR ACCIDENT [None]
  - FALL [None]
  - UPPER LIMB FRACTURE [None]
